FAERS Safety Report 23323327 (Version 4)
Quarter: 2024Q1

REPORT INFORMATION
  Report Type: Spontaneous
  Country: US (occurrence: US)
  Receive Date: 20231220
  Receipt Date: 20240327
  Transmission Date: 20240410
  Serious: Yes (Other)
  Sender: FDA-Public Use
  Company Number: US-CELLTRION INC.-2023US024095

PATIENT

DRUGS (2)
  1. INFLECTRA [Suspect]
     Active Substance: INFLIXIMAB-DYYB
     Indication: Product used for unknown indication
  2. AVSOLA [Suspect]
     Active Substance: INFLIXIMAB-AXXQ
     Indication: Product used for unknown indication
     Dosage: 5 MG/KG, WAS GETTING EVERY 8 WEEKS
     Route: 042
     Dates: start: 20220801

REACTIONS (4)
  - Craniocerebral injury [Unknown]
  - Surgery [Unknown]
  - Seizure [Unknown]
  - Intentional product misuse [Unknown]
